FAERS Safety Report 13896018 (Version 1)
Quarter: 2017Q3

REPORT INFORMATION
  Report Type: Spontaneous
  Country: US (occurrence: US)
  Receive Date: 20170823
  Receipt Date: 20170823
  Transmission Date: 20171127
  Serious: No
  Sender: FDA-Public Use
  Company Number: US-TEVA-707460USA

PATIENT
  Sex: Male

DRUGS (1)
  1. METOPROLOL SUCCINATE ER [Suspect]
     Active Substance: METOPROLOL SUCCINATE

REACTIONS (3)
  - Dizziness [Unknown]
  - Headache [Unknown]
  - Haematuria [Unknown]

NARRATIVE: CASE EVENT DATE: 201607
